FAERS Safety Report 12417739 (Version 4)
Quarter: 2016Q3

REPORT INFORMATION
  Report Type: Spontaneous
  Country: JP (occurrence: JP)
  Receive Date: 20160530
  Receipt Date: 20160909
  Transmission Date: 20161109
  Serious: Yes (Death, Life-Threatening)
  Sender: FDA-Public Use
  Company Number: PHJP2016JP014035

PATIENT
  Age: 77 Year
  Sex: Female
  Weight: 39 kg

DRUGS (15)
  1. NEORAL [Suspect]
     Active Substance: CYCLOSPORINE
     Indication: INTERSTITIAL LUNG DISEASE
     Dosage: 150 MG, QD
     Route: 048
     Dates: start: 20150227, end: 20150313
  2. SANDIMMUNE [Suspect]
     Active Substance: CYCLOSPORINE
     Indication: PRODUCT USED FOR UNKNOWN INDICATION
     Dosage: UNK
     Route: 065
  3. SELARA [Concomitant]
     Active Substance: EPLERENONE
     Indication: PRIMARY HYPERALDOSTERONISM
     Dosage: 50 MG, QD
     Route: 048
  4. CYCLOPHOSPHAMIDE. [Concomitant]
     Active Substance: CYCLOPHOSPHAMIDE
     Indication: DERMATOMYOSITIS
  5. NEORAL [Suspect]
     Active Substance: CYCLOSPORINE
     Indication: DERMATOMYOSITIS
  6. MYSLEE [Concomitant]
     Active Substance: ZOLPIDEM TARTRATE
     Indication: PRODUCT USED FOR UNKNOWN INDICATION
     Dosage: 5 MG, QD
     Route: 048
     Dates: start: 20141222
  7. CYCLOPHOSPHAMIDE. [Concomitant]
     Active Substance: CYCLOPHOSPHAMIDE
     Indication: INTERSTITIAL LUNG DISEASE
     Dosage: 500 MG, QD
     Route: 041
     Dates: start: 20150227, end: 20150227
  8. HALIZON [Concomitant]
     Active Substance: AMPHOTERICIN B
     Indication: PRODUCT USED FOR UNKNOWN INDICATION
     Dosage: 400 MG, QD
     Route: 048
     Dates: start: 20140123
  9. NORVASC [Concomitant]
     Active Substance: AMLODIPINE BESYLATE
     Indication: HYPERTENSION
     Dosage: 5 MG, QD
     Route: 048
  10. GASCON [Concomitant]
     Active Substance: DIMETHICONE
     Indication: PRODUCT USED FOR UNKNOWN INDICATION
     Dosage: 40 MG, QD
     Route: 048
  11. BAKTAR [Concomitant]
     Active Substance: SULFAMETHOXAZOLE\TRIMETHOPRIM
     Indication: PRODUCT USED FOR UNKNOWN INDICATION
     Dosage: 1 DF, QD
     Route: 048
     Dates: start: 20150103, end: 20150114
  12. PARIET [Concomitant]
     Active Substance: RABEPRAZOLE SODIUM
     Indication: PRODUCT USED FOR UNKNOWN INDICATION
     Dosage: 10 MG, QD
     Route: 048
     Dates: start: 20141215
  13. RINDERON V [Concomitant]
     Active Substance: BETAMETHASONE VALERATE
     Indication: INTERSTITIAL LUNG DISEASE
     Dosage: 4 MG, QD
     Route: 048
     Dates: start: 20141219
  14. RINDERON V [Concomitant]
     Active Substance: BETAMETHASONE VALERATE
     Indication: DERMATOMYOSITIS
  15. FOSAMAC [Concomitant]
     Active Substance: ALENDRONATE SODIUM
     Indication: PRODUCT USED FOR UNKNOWN INDICATION
     Dosage: 35 MG, QD
     Route: 048
     Dates: start: 20141226

REACTIONS (9)
  - Thrombotic thrombocytopenic purpura [Not Recovered/Not Resolved]
  - Blood urea increased [Recovered/Resolved]
  - Interstitial lung disease [Fatal]
  - Protein urine present [Unknown]
  - Product use issue [Unknown]
  - Dermatomyositis [Fatal]
  - Lymphocyte count decreased [Unknown]
  - Immunosuppressant drug level increased [Unknown]
  - Hepatitis fulminant [Recovered/Resolved]

NARRATIVE: CASE EVENT DATE: 201503
